FAERS Safety Report 16149413 (Version 2)
Quarter: 2022Q1

REPORT INFORMATION
  Report Type: Spontaneous
  Country: US (occurrence: US)
  Receive Date: 20190402
  Receipt Date: 20220203
  Transmission Date: 20220423
  Serious: No
  Sender: FDA-Public Use
  Company Number: US-ELI_LILLY_AND_COMPANY-US201903008444

PATIENT
  Age: 9 Year
  Sex: Male

DRUGS (2)
  1. HUMATROPE [Suspect]
     Active Substance: SOMATROPIN
     Indication: Radiation injury
     Dosage: UNK UNK, UNKNOWN
     Route: 058
     Dates: start: 201903
  2. LEVOTHYROXINE [Concomitant]
     Active Substance: LEVOTHYROXINE
     Indication: Radiation injury
     Dosage: UNK UNK, UNKNOWN
     Route: 065

REACTIONS (4)
  - Teething [Recovered/Resolved]
  - Oropharyngeal pain [Recovered/Resolved]
  - Precocious puberty [Unknown]
  - Hypersensitivity [Unknown]

NARRATIVE: CASE EVENT DATE: 20190311
